FAERS Safety Report 6981140-X (Version None)
Quarter: 2010Q3

REPORT INFORMATION
  Report Type: 
  Country: None (occurrence: None)
  Receive Date: 20100914
  Receipt Date: 20100819
  Transmission Date: 20110219
  Serious: No
  Sender: FDA-Public Use
  Company Number: US-PFIZER INC-2010092838

PATIENT

DRUGS (1)
  1. CHANTIX [Suspect]
     Dosage: UNK

REACTIONS (5)
  - EXPOSURE TO CONTAMINATED AIR [None]
  - HEADACHE [None]
  - OROPHARYNGEAL PAIN [None]
  - RESPIRATORY DISORDER [None]
  - THROAT IRRITATION [None]
